FAERS Safety Report 10015254 (Version 1)
Quarter: 2014Q1

REPORT INFORMATION
  Report Type: Spontaneous
  Country: US (occurrence: US)
  Receive Date: 20140317
  Receipt Date: 20140317
  Transmission Date: 20141002
  Serious: No
  Sender: FDA-Public Use
  Company Number: US-PFIZER INC-2014074470

PATIENT
  Age: 57 Year
  Sex: Male

DRUGS (1)
  1. SUTENT [Suspect]
     Indication: HEPATIC CANCER
     Dosage: 50 MG, UNK
     Dates: start: 20131203

REACTIONS (3)
  - Disease progression [Unknown]
  - Hepatic cancer [Unknown]
  - Off label use [Unknown]
